FAERS Safety Report 16100722 (Version 1)
Quarter: 2019Q1

REPORT INFORMATION
  Report Type: Spontaneous
  Country: IT (occurrence: IT)
  Receive Date: 20190321
  Receipt Date: 20190321
  Transmission Date: 20190418
  Serious: Yes (Hospitalization)
  Sender: FDA-Public Use
  Company Number: IT-MYLANLABS-2019M1025535

PATIENT
  Age: 78 Year
  Sex: Male

DRUGS (3)
  1. IBUPROFEN. [Suspect]
     Active Substance: IBUPROFEN
     Indication: PAIN
     Dosage: 1 DOSAGE FORM, TOTAL
     Route: 048
     Dates: start: 20180815, end: 20180815
  2. COUMADIN [Interacting]
     Active Substance: WARFARIN SODIUM
     Indication: ATRIAL FIBRILLATION
     Dosage: 1 DOSAGE FORM, PRN
     Route: 048
     Dates: start: 20180101, end: 20180816
  3. TRIPLIAM [Concomitant]
     Active Substance: AMLODIPINE\INDAPAMIDE\PERINDOPRIL

REACTIONS (2)
  - Haematemesis [Unknown]
  - Drug interaction [Unknown]

NARRATIVE: CASE EVENT DATE: 20180816
